FAERS Safety Report 11481225 (Version 6)
Quarter: 2016Q1

REPORT INFORMATION
  Report Type: Report from Study
  Country: CA (occurrence: CA)
  Receive Date: 20150909
  Receipt Date: 20160131
  Transmission Date: 20160525
  Serious: Yes (Hospitalization, Other)
  Sender: FDA-Public Use
  Company Number: PHHY2015CA107614

PATIENT
  Age: 31 Year
  Sex: Female

DRUGS (2)
  1. SANDOSTATIN [Suspect]
     Active Substance: OCTREOTIDE ACETATE
     Indication: NEUROENDOCRINE CARCINOMA METASTATIC
     Dosage: UNK (TEST DOSE)
     Route: 058
     Dates: start: 20150604, end: 20150604
  2. SANDOSTATIN LAR DEPOT [Suspect]
     Active Substance: OCTREOTIDE ACETATE
     Indication: NEUROENDOCRINE CARCINOMA METASTATIC
     Dosage: 30 MG, QMO (EVERY 30 DAYS)
     Route: 030
     Dates: start: 20150609

REACTIONS (6)
  - Blood pressure systolic increased [Unknown]
  - Polycystic liver disease [Unknown]
  - Malaise [Unknown]
  - Hypersensitivity [Unknown]
  - Rash generalised [Unknown]
  - Blood pressure increased [Unknown]

NARRATIVE: CASE EVENT DATE: 2015
